FAERS Safety Report 6344067-2 (Version None)
Quarter: 2009Q3

REPORT INFORMATION
  Report Type: 
  Country: None (occurrence: None)
  Receive Date: 20090908
  Receipt Date: 20090825
  Transmission Date: 20100115
  Serious: Yes (Death, Other)
  Sender: FDA-Public Use
  Company Number: JP-PFIZER INC-2009242973

PATIENT
  Age: 27 Year

DRUGS (5)
  1. PREDNISOLONE AND PREDNISOLONE STEAGLATE [Suspect]
     Indication: AUTOIMMUNE HEPATITIS
     Dosage: 30 MG, 1X/DAY
     Dates: start: 20060111, end: 20060101
  2. PREDNISOLONE AND PREDNISOLONE STEAGLATE [Suspect]
     Dosage: 40 MG, 1X/DAY
     Dates: start: 20060101
  3. AZATHIOPRINE [Suspect]
     Indication: AUTOIMMUNE HEPATITIS
     Dosage: 50 MG, 1X/DAY
     Dates: start: 20060207
  4. CYCLOSPORINE [Suspect]
  5. METHYLPREDNISOLONE [Concomitant]
     Dosage: 1 G, 1X/DAY
     Dates: start: 20060124

REACTIONS (2)
  - DRUG RESISTANCE [None]
  - PNEUMOCYSTIS JIROVECI INFECTION [None]
